FAERS Safety Report 7461228-X (Version None)
Quarter: 2011Q2

REPORT INFORMATION
  Report Type: 
  Country: None (occurrence: None)
  Receive Date: 20110506
  Receipt Date: 20110504
  Transmission Date: 20111010
  Serious: Yes (Hospitalization)
  Sender: FDA-Public Use
  Company Number: US-BRISTOL-MYERS SQUIBB COMPANY-15717721

PATIENT
  Sex: Female

DRUGS (1)
  1. YERVOY [Suspect]
     Dosage: LAST INF 2 WKS AGO

REACTIONS (1)
  - PAIN [None]
